FAERS Safety Report 18652455 (Version 9)
Quarter: 2024Q1

REPORT INFORMATION
  Report Type: Report from Study
  Country: JP (occurrence: JP)
  Receive Date: 20201223
  Receipt Date: 20240318
  Transmission Date: 20240410
  Serious: Yes (Other)
  Sender: FDA-Public Use
  Company Number: JP-TAKEDA-2020TJP026353

PATIENT
  Age: 60 Year
  Sex: Male
  Weight: 75 kg

DRUGS (20)
  1. LEUPROLIDE ACETATE [Suspect]
     Active Substance: ISOPROPYL ALCOHOL\LEUPROLIDE ACETATE
     Indication: Bulbospinal muscular atrophy congenital
     Dosage: 11.25 MILLIGRAM
     Route: 058
     Dates: start: 20171030
  2. MAGNESIUM OXIDE [Concomitant]
     Active Substance: MAGNESIUM OXIDE
     Indication: Constipation
     Dosage: 660 MILLIGRAM
     Route: 065
     Dates: start: 20221223, end: 20230303
  3. PRAVASTATIN SODIUM [Concomitant]
     Active Substance: PRAVASTATIN SODIUM
     Indication: Product used for unknown indication
     Dosage: 5 MILLIGRAM
     Route: 065
  4. PRAVASTATIN SODIUM [Concomitant]
     Active Substance: PRAVASTATIN SODIUM
     Indication: Product used for unknown indication
     Dosage: 10 MILLIGRAM
     Route: 065
     Dates: start: 20191114, end: 20210506
  5. SENNOSIDES A AND B [Concomitant]
     Active Substance: SENNOSIDES A AND B
     Indication: Constipation
     Dosage: 12 MILLIGRAM
     Route: 065
     Dates: start: 20221223, end: 20230303
  6. AMLODIPINE [Concomitant]
     Active Substance: AMLODIPINE BESYLATE
     Indication: Product used for unknown indication
     Dosage: 5 MILLIGRAM
     Route: 065
  7. KETOPROFEN [Concomitant]
     Active Substance: KETOPROFEN
     Indication: Arthralgia
     Dosage: 40 MILLIGRAM
     Route: 065
     Dates: start: 20210212, end: 20220212
  8. VARENICLINE TARTRATE [Concomitant]
     Active Substance: VARENICLINE TARTRATE
     Indication: Nicotine dependence
     Dosage: UNK
     Route: 065
     Dates: start: 20171017, end: 20171031
  9. VARENICLINE TARTRATE [Concomitant]
     Active Substance: VARENICLINE TARTRATE
     Indication: Nicotine dependence
     Dosage: 0.5 MILLIGRAM
     Route: 065
     Dates: start: 20171031, end: 20171102
  10. VARENICLINE TARTRATE [Concomitant]
     Active Substance: VARENICLINE TARTRATE
     Indication: Nicotine dependence
     Dosage: 1 MILLIGRAM
     Route: 065
     Dates: start: 20171103, end: 20171106
  11. VARENICLINE TARTRATE [Concomitant]
     Active Substance: VARENICLINE TARTRATE
     Indication: Nicotine dependence
     Dosage: 2 MILLIGRAM
     Route: 065
     Dates: start: 20171107, end: 20180114
  12. UMECLIDINIUM BROMIDE [Concomitant]
     Active Substance: UMECLIDINIUM BROMIDE
     Indication: Chronic obstructive pulmonary disease
     Dosage: 62.5 MICROGRAM
     Route: 065
     Dates: start: 20230126, end: 20231002
  13. Inavir [Concomitant]
     Indication: Product used for unknown indication
     Dosage: 40 MILLIGRAM
     Route: 065
     Dates: start: 20180416, end: 20180416
  14. TAMIFLU [Concomitant]
     Active Substance: OSELTAMIVIR PHOSPHATE
     Indication: Prophylaxis
     Dosage: 75 MILLIGRAM
     Route: 065
     Dates: start: 20190202, end: 20190211
  15. TAMIFLU [Concomitant]
     Active Substance: OSELTAMIVIR PHOSPHATE
     Indication: Prophylaxis
     Dosage: 75 MILLIGRAM
     Route: 065
     Dates: start: 20200221, end: 20200301
  16. TRANEXAMIC ACID [Concomitant]
     Active Substance: TRANEXAMIC ACID
     Indication: Viral pharyngitis
     Dosage: 1500 MILLIGRAM
     Route: 065
     Dates: start: 20191114, end: 20191119
  17. CARBOCYSTEINE [Concomitant]
     Active Substance: CARBOCYSTEINE
     Indication: Viral pharyngitis
     Dosage: 1500 MILLIGRAM
     Route: 065
     Dates: start: 20191114, end: 20191119
  18. CARBOCYSTEINE [Concomitant]
     Active Substance: CARBOCYSTEINE
     Indication: Viral pharyngitis
     Dosage: 1500 MILLIGRAM
     Route: 065
     Dates: start: 20191223, end: 20191230
  19. XYZAL [Concomitant]
     Active Substance: LEVOCETIRIZINE DIHYDROCHLORIDE
     Indication: Viral pharyngitis
     Dosage: 5 MILLIGRAM
     Route: 065
     Dates: start: 20191114, end: 20191119
  20. JARDIANCE [Concomitant]
     Active Substance: EMPAGLIFLOZIN
     Indication: Product used for unknown indication
     Dosage: 10 MILLIGRAM
     Route: 065
     Dates: start: 20221115

REACTIONS (11)
  - Diabetes mellitus [Recovering/Resolving]
  - Rash [Not Recovered/Not Resolved]
  - Lipid metabolism disorder [Recovering/Resolving]
  - Injection site induration [Recovered/Resolved]
  - Injection site erythema [Recovered/Resolved]
  - Injection site erosion [Recovered/Resolved]
  - Injection site induration [Recovered/Resolved]
  - Injection site ulcer [Recovered/Resolved]
  - Injection site reaction [Recovered/Resolved]
  - Injection site reaction [Recovered/Resolved]
  - Rehabilitation therapy [Unknown]

NARRATIVE: CASE EVENT DATE: 20180122
